FAERS Safety Report 9441123 (Version 2)
Quarter: 2013Q3

REPORT INFORMATION
  Report Type: Spontaneous
  Country: US (occurrence: US)
  Receive Date: 20130805
  Receipt Date: 20130809
  Transmission Date: 20140515
  Serious: Yes (Death, Hospitalization, Other)
  Sender: FDA-Public Use
  Company Number: US-MERCK-1308USA000293

PATIENT
  Age: 82 Year
  Sex: Male

DRUGS (2)
  1. JANUVIA [Suspect]
     Indication: DIABETES MELLITUS
     Dosage: UNK
     Route: 048
     Dates: start: 20111220
  2. JANUVIA [Suspect]
     Dosage: UNK
     Route: 048
     Dates: start: 20111011, end: 20111220

REACTIONS (2)
  - Death [Fatal]
  - Pancreatic carcinoma [Unknown]
